FAERS Safety Report 24853053 (Version 2)
Quarter: 2025Q2

REPORT INFORMATION
  Report Type: Report from Study
  Country: US (occurrence: US)
  Receive Date: 20250116
  Receipt Date: 20250410
  Transmission Date: 20250717
  Serious: Yes (Hospitalization, Other)
  Sender: JOHNSON AND JOHNSON
  Company Number: US-JNJFOC-20241212803

PATIENT
  Age: 4 Year
  Sex: Female
  Weight: 22 kg

DRUGS (10)
  1. TRACLEER [Suspect]
     Active Substance: BOSENTAN
     Indication: Product used for unknown indication
     Route: 048
     Dates: end: 20211012
  2. SPIRONOLACTONE [Concomitant]
     Active Substance: SPIRONOLACTONE
  3. ASPIRIN [Concomitant]
     Active Substance: ASPIRIN
  4. BUDESONIDE [Concomitant]
     Active Substance: BUDESONIDE
  5. CHLORHEXIDINE ACETATE [Concomitant]
     Active Substance: CHLORHEXIDINE ACETATE
  6. CHOLECALCIFEROL ARROW [Concomitant]
  7. ENALAPRIL MEDICINE [Concomitant]
  8. FUROSEMIDE ACCORD [FUROSEMIDE] [Concomitant]
  9. LEVALBUTEROL [Concomitant]
     Active Substance: LEVALBUTEROL
  10. METOCLOPRAMIDE HYDROCHLORIDE [Concomitant]
     Active Substance: METOCLOPRAMIDE HYDROCHLORIDE

REACTIONS (16)
  - Tracheostomy [Unknown]
  - Endotracheal intubation [Unknown]
  - Peripheral vein occlusion [Unknown]
  - Hospitalisation [Unknown]
  - Shunt occlusion [Unknown]
  - Atrial septal defect repair [Unknown]
  - Feeding disorder [Unknown]
  - Tachypnoea [Unknown]
  - Selective eating disorder [Unknown]
  - Weight decreased [Unknown]
  - Electrolyte imbalance [Unknown]
  - Weight increased [Unknown]
  - Oxygen saturation abnormal [Unknown]
  - Catheterisation cardiac [Unknown]
  - Residual urine volume [Unknown]
  - Left ventricular dysfunction [Unknown]

NARRATIVE: CASE EVENT DATE: 20170601
